FAERS Safety Report 8537620-9 (Version None)
Quarter: 2012Q3

REPORT INFORMATION
  Report Type: 
  Country: None (occurrence: None)
  Receive Date: 20120725
  Receipt Date: 20120718
  Transmission Date: 20120928
  Serious: Yes (Other)
  Sender: FDA-Public Use
  Company Number: JP-VERTEX PHARMACEUTICALS INC.-AE-2012-009484

PATIENT
  Age: 70 Year
  Sex: Male

DRUGS (4)
  1. PEGINTERFERON ALFA-2B [Concomitant]
     Indication: HEPATITIS C
     Route: 058
     Dates: start: 20120508
  2. RIBAVIRIN [Concomitant]
     Indication: HEPATITIS C
     Route: 048
     Dates: start: 20120508
  3. TELAVIC (TELAPREVIR) [Suspect]
     Indication: HEPATITIS C
     Route: 048
     Dates: start: 20120508, end: 20120519
  4. TELAVIC (TELAPREVIR) [Suspect]
     Route: 048
     Dates: start: 20120520, end: 20120716

REACTIONS (2)
  - DEPRESSION [None]
  - WHITE BLOOD CELL COUNT DECREASED [None]
